FAERS Safety Report 20470542 (Version 1)
Quarter: 2022Q1

REPORT INFORMATION
  Report Type: Spontaneous
  Country: FR (occurrence: FR)
  Receive Date: 20220214
  Receipt Date: 20220214
  Transmission Date: 20220424
  Serious: Yes (Death)
  Sender: FDA-Public Use
  Company Number: None

PATIENT
  Sex: Male

DRUGS (15)
  1. AMOXICILLIN [Suspect]
     Active Substance: AMOXICILLIN
     Indication: Appendicitis perforated
     Dosage: 3 G
     Route: 064
     Dates: start: 20210816, end: 20210817
  2. ONDANSETRON [Suspect]
     Active Substance: ONDANSETRON
     Indication: Nausea
     Dosage: CHLORHYDRATE D ONDANSETRON DIHYDRATE , 16 MG
     Route: 064
     Dates: start: 20210810, end: 20210815
  3. TRAMADOL [Suspect]
     Active Substance: TRAMADOL
     Indication: Pain
     Dosage: CHLORHYDRATE DE TRAMADOL , 100 MG
     Route: 064
     Dates: start: 20210808, end: 20210816
  4. PANTOPRAZOLE [Suspect]
     Active Substance: PANTOPRAZOLE
     Indication: Gastrooesophageal reflux disease
     Dosage: 20 MG
     Route: 064
     Dates: start: 20210815, end: 20210816
  5. ACETAMINOPHEN [Suspect]
     Active Substance: ACETAMINOPHEN
     Indication: Pain
     Dosage: 4 G
     Route: 064
     Dates: start: 20210808, end: 20210816
  6. PHLOROGLUCINOL [Suspect]
     Active Substance: PHLOROGLUCINOL
     Indication: Pain
     Dosage: PHLOROGLUCINOL ANHYDRE , 240 MG
     Route: 064
     Dates: start: 20210808, end: 20210816
  7. CLAVULANIC ACID [Suspect]
     Active Substance: CLAVULANIC ACID
     Indication: Appendicitis perforated
     Dosage: CLAVULANIQUE (ACIDE) , 275 MG
     Route: 064
     Dates: start: 20210816, end: 20210817
  8. CEFOTAXIME [Suspect]
     Active Substance: CEFOTAXIME SODIUM
     Indication: Appendicitis perforated
     Dosage: CEFOTAXIME BASE , 3 G
     Route: 064
     Dates: start: 20210810, end: 20210815
  9. SERTACONAZOLE NITRATE [Suspect]
     Active Substance: SERTACONAZOLE NITRATE
     Indication: Vulvovaginal mycotic infection
     Dosage: 1 DF
     Route: 064
     Dates: start: 20210804, end: 20210804
  10. ENOXAPARIN SODIUM [Suspect]
     Active Substance: ENOXAPARIN SODIUM
     Indication: Prophylaxis
     Dosage: ENOXAPARINE SODIQUE ((MAMMIFERE/PORC/MUQUEUSE INTESTINALE)) , 4000 IU
     Route: 064
     Dates: start: 20210810, end: 20210816
  11. METRONIDAZOLE [Suspect]
     Active Substance: METRONIDAZOLE
     Indication: Appendicitis perforated
     Dosage: 3 G
     Route: 064
     Dates: start: 20210810, end: 20210815
  12. LEVOTHYROXINE [Suspect]
     Active Substance: LEVOTHYROXINE
     Indication: COVID-19 immunisation
     Dosage: 50 MCG
     Route: 064
     Dates: start: 20210505, end: 20211019
  13. NEFOPAM HYDROCHLORIDE [Suspect]
     Active Substance: NEFOPAM HYDROCHLORIDE
     Indication: Pain
     Dosage: NEFOPAM (CHLORHYDRATE DE) , 80 MG
     Route: 064
     Dates: start: 20210810, end: 20210813
  14. COMIRNATY [Suspect]
     Active Substance: TOZINAMERAN
     Indication: COVID-19 immunisation
     Dosage: DISPERSION TO BE DILUTED FOR INJECTION , COVID-19 MRNA VACCINE (MODIFIED NUCLEOSIDE) , UNIT DOSE : 0
     Route: 064
     Dates: start: 20210502, end: 20210502
  15. ROPIVACAINE HYDROCHLORIDE [Suspect]
     Active Substance: ROPIVACAINE HYDROCHLORIDE
     Indication: Anaesthesia
     Dosage: SOLUTION FOR INJECTION IN AMPOULE , 20 ML
     Route: 064
     Dates: start: 20210810, end: 20210810

REACTIONS (1)
  - Urethral valves [Fatal]

NARRATIVE: CASE EVENT DATE: 20210929
